FAERS Safety Report 4469685-8 (Version None)
Quarter: 2004Q4

REPORT INFORMATION
  Report Type: 
  Country: None (occurrence: None)
  Receive Date: 20041008
  Receipt Date: 20041001
  Transmission Date: 20050328
  Serious: Yes (Disabling)
  Sender: FDA-Public Use
  Company Number: US-MERCK-0410USA00324

PATIENT
  Age: 22 Year
  Sex: Male

DRUGS (1)
  1. PROPECIA [Suspect]
     Indication: HYPOTRICHOSIS
     Route: 048
     Dates: start: 19990101, end: 20040401

REACTIONS (3)
  - COUGH [None]
  - PROSTATITIS [None]
  - TESTICULAR PAIN [None]
